FAERS Safety Report 5003686-6 (Version None)
Quarter: 2006Q2

REPORT INFORMATION
  Report Type: 
  Country: None (occurrence: None)
  Receive Date: 20060516
  Receipt Date: 20051013
  Transmission Date: 20061013
  Serious: Yes (Hospitalization, Disabling)
  Sender: FDA-Public Use
  Company Number: US-MERCK-0510USA07525

PATIENT
  Age: 62 Year
  Sex: Female
  Weight: 92 kg

DRUGS (18)
  1. VIOXX [Suspect]
     Indication: ARTHRITIS
     Route: 048
     Dates: start: 20000217, end: 20040107
  2. ALTACE [Concomitant]
     Indication: HYPERTENSION
     Route: 065
     Dates: start: 20010917, end: 20050314
  3. TOPROL-XL [Concomitant]
     Indication: HYPERTENSION
     Route: 065
  4. HISTEX CT [Concomitant]
     Route: 065
  5. CEFZIL [Concomitant]
     Route: 065
  6. CELEBREX [Concomitant]
     Indication: PAIN IN EXTREMITY
     Route: 065
     Dates: start: 19990729, end: 20000217
  7. CELEBREX [Concomitant]
     Route: 065
     Dates: start: 20010910, end: 20011001
  8. CELEBREX [Concomitant]
     Route: 065
     Dates: start: 20040217, end: 20040101
  9. CELEBREX [Concomitant]
     Indication: ARTHRALGIA
     Route: 065
     Dates: start: 19990729, end: 20000217
  10. CELEBREX [Concomitant]
     Route: 065
     Dates: start: 20010910, end: 20011001
  11. CELEBREX [Concomitant]
     Route: 065
     Dates: start: 20040217, end: 20040101
  12. MOTRIN [Concomitant]
     Indication: PAIN MANAGEMENT
     Route: 065
     Dates: start: 19990827
  13. MOTRIN [Concomitant]
     Route: 065
     Dates: start: 20031124, end: 20030101
  14. MOTRIN [Concomitant]
     Indication: CHEST PAIN
     Route: 065
     Dates: start: 19990827
  15. MOTRIN [Concomitant]
     Route: 065
     Dates: start: 20031124, end: 20030101
  16. DEMADEX [Concomitant]
     Indication: OEDEMA
     Route: 065
     Dates: start: 19990719, end: 20000414
  17. DEMADEX [Concomitant]
     Indication: HYPERTENSION
     Route: 065
     Dates: start: 19990719, end: 20000414
  18. IMDUR [Concomitant]
     Route: 065
     Dates: end: 20001002

REACTIONS (8)
  - ARTHRITIS [None]
  - CORONARY ARTERY DISEASE [None]
  - HYPOAESTHESIA [None]
  - MYOCARDIAL INFARCTION [None]
  - OSTEOARTHRITIS [None]
  - PALPITATIONS [None]
  - SINUS CONGESTION [None]
  - SINUS TACHYCARDIA [None]
